FAERS Safety Report 7702231-1 (Version None)
Quarter: 2011Q3

REPORT INFORMATION
  Report Type: 
  Country: None (occurrence: None)
  Receive Date: 20110822
  Receipt Date: 20110809
  Transmission Date: 20111222
  Serious: Yes (Other)
  Sender: FDA-Public Use
  Company Number: US-BAYER-2011-071824

PATIENT
  Age: 43 Year
  Sex: Female
  Weight: 82.54 kg

DRUGS (1)
  1. ALEVE (CAPLET) [Suspect]
     Indication: HEADACHE
     Dosage: 1 DF, ONCE
     Dates: start: 20110809, end: 20110809

REACTIONS (8)
  - DYSPNOEA [None]
  - HYPERSENSITIVITY [None]
  - ERYTHEMA [None]
  - OEDEMA PERIPHERAL [None]
  - CYANOSIS [None]
  - GENERALISED ERYTHEMA [None]
  - PRURITUS [None]
  - RASH [None]
